FAERS Safety Report 12183209 (Version 1)
Quarter: 2016Q1

REPORT INFORMATION
  Report Type: Spontaneous
  Country: US (occurrence: US)
  Receive Date: 20160316
  Receipt Date: 20160316
  Transmission Date: 20160526
  Serious: Yes (Death)
  Sender: FDA-Public Use
  Company Number: PHEH2016US006303

PATIENT
  Age: 64 Year
  Sex: Male

DRUGS (1)
  1. VOTRIENT [Suspect]
     Active Substance: PAZOPANIB HYDROCHLORIDE
     Indication: NEUROENDOCRINE CARCINOMA OF THE SKIN
     Dosage: 200 MG, QD
     Route: 048

REACTIONS (3)
  - Hepatotoxicity [Unknown]
  - Death [Fatal]
  - Off label use [Unknown]
